FAERS Safety Report 17722333 (Version 1)
Quarter: 2020Q2

REPORT INFORMATION
  Report Type: Spontaneous
  Country: ES (occurrence: ES)
  Receive Date: 20200429
  Receipt Date: 20200429
  Transmission Date: 20200714
  Serious: Yes (Other)
  Sender: FDA-Public Use
  Company Number: ES-TEVA-2020-ES-1227342

PATIENT
  Age: 81 Year
  Sex: Female

DRUGS (4)
  1. DOLQUINE 200 MG COMPRIMIDOS RECUBIERTOS, 30 COMPRIMIDOS [Suspect]
     Active Substance: HYDROXYCHLOROQUINE SULFATE
     Indication: SYSTEMIC LUPUS ERYTHEMATOSUS
     Dosage: 1 COMP/24H, 200 MG
     Route: 048
     Dates: start: 20191228, end: 20200413
  2. LEVOFLOXACINO (2791A) [Suspect]
     Active Substance: LEVOFLOXACIN
     Indication: RESPIRATORY TRACT INFECTION
     Dosage: 500 MILLIGRAM DAILY;
     Route: 048
     Dates: start: 20200325
  3. AMOXICILINA ACIDO CLAVULANICO SALA [Suspect]
     Active Substance: AMOXICILLIN\CLAVULANIC ACID
     Indication: RESPIRATORY TRACT INFECTION
     Dosage: 1 COMP/8H
     Route: 048
     Dates: start: 20200318, end: 20200325
  4. METRONIDAZOL (1966A) [Suspect]
     Active Substance: METRONIDAZOLE
     Indication: DIARRHOEA
     Route: 048
     Dates: start: 20200325

REACTIONS (2)
  - Condition aggravated [Recovering/Resolving]
  - Agranulocytosis [Recovering/Resolving]

NARRATIVE: CASE EVENT DATE: 20200407
